FAERS Safety Report 4483721-4 (Version None)
Quarter: 2004Q4

REPORT INFORMATION
  Report Type: 
  Country: None (occurrence: None)
  Receive Date: 20041022
  Receipt Date: 20041022
  Transmission Date: 20050328
  Serious: Yes (Disabling, Other)
  Sender: FDA-Public Use
  Company Number: None

PATIENT
  Age: 47 Year
  Sex: Female
  Weight: 68.0396 kg

DRUGS (1)
  1. EFFEXOR XR [Suspect]
     Indication: ANXIETY
     Dosage: 150 MG /1 X DAY/ORAL
     Route: 048
     Dates: start: 20040114, end: 20041012

REACTIONS (4)
  - CHEST PAIN [None]
  - CRYING [None]
  - EMOTIONAL DISORDER [None]
  - SUICIDAL IDEATION [None]
